FAERS Safety Report 7987304-0 (Version None)
Quarter: 2011Q4

REPORT INFORMATION
  Report Type: 
  Country: None (occurrence: None)
  Receive Date: 20111216
  Receipt Date: 20110401
  Transmission Date: 20120403
  Serious: Yes (Other)
  Sender: FDA-Public Use
  Company Number: US-BRISTOL-MYERS SQUIBB COMPANY-15650229

PATIENT
  Age: 14 Year

DRUGS (2)
  1. SEROTONIN REUPTAKE INHIBITORS [Suspect]
     Indication: MAJOR DEPRESSION
  2. ABILIFY [Suspect]
     Indication: MAJOR DEPRESSION

REACTIONS (1)
  - SUICIDAL IDEATION [None]
